FAERS Safety Report 7388856-4 (Version None)
Quarter: 2011Q2

REPORT INFORMATION
  Report Type: 
  Country: None (occurrence: None)
  Receive Date: 20110401
  Receipt Date: 20101021
  Transmission Date: 20111010
  Serious: Yes (Hospitalization, Other)
  Sender: FDA-Public Use
  Company Number: US-BAYER-200938789NA

PATIENT
  Sex: Female
  Weight: 68.182 kg

DRUGS (7)
  1. NEXIUM [Concomitant]
  2. PERCOCET [Concomitant]
  3. LORCET-HD [Concomitant]
  4. PHENERGAN [Concomitant]
  5. YASMIN [Suspect]
     Indication: ORAL CONTRACEPTION
     Dosage: UNK
     Route: 048
     Dates: start: 20080601, end: 20090101
  6. ABILIFY [Concomitant]
  7. YAZ [Suspect]
     Indication: ORAL CONTRACEPTION
     Route: 048
     Dates: start: 20080601, end: 20090101

REACTIONS (3)
  - INJURY [None]
  - CHOLECYSTITIS [None]
  - CHOLECYSTECTOMY [None]
